FAERS Safety Report 13511596 (Version 1)
Quarter: 2017Q2

REPORT INFORMATION
  Report Type: Other
  Country: FR (occurrence: FR)
  Receive Date: 20170504
  Receipt Date: 20170504
  Transmission Date: 20170830
  Serious: Yes (Hospitalization)
  Sender: FDA-Public Use
  Company Number: FR-CELLTRION INC.-2017FR005614

PATIENT

DRUGS (1)
  1. INFLECTRA [Suspect]
     Active Substance: INFLIXIMAB-DYYB
     Indication: CROHN^S DISEASE
     Dosage: 200 MG, SINGLE (FOR 2 HOURS)
     Route: 042
     Dates: start: 20161226, end: 20161226

REACTIONS (3)
  - Drug specific antibody present [Unknown]
  - Drug level decreased [Unknown]
  - Serum sickness-like reaction [Recovered/Resolved]

NARRATIVE: CASE EVENT DATE: 20161229
